FAERS Safety Report 5269556-3 (Version None)
Quarter: 2007Q1

REPORT INFORMATION
  Report Type: 
  Country: None (occurrence: None)
  Receive Date: 20070320
  Receipt Date: 20070312
  Transmission Date: 20070707
  Serious: Yes (Other)
  Sender: FDA-Public Use
  Company Number: BR-AVENTIS-200712252GDDC

PATIENT
  Age: 2 Year
  Sex: Male
  Weight: 12 kg

DRUGS (1)
  1. FLAGYL [Suspect]
     Route: 048
     Dates: start: 20070305, end: 20070307

REACTIONS (3)
  - GAIT DISTURBANCE [None]
  - TREMOR [None]
  - VOMITING [None]
